FAERS Safety Report 5811824-8 (Version None)
Quarter: 2008Q3

REPORT INFORMATION
  Report Type: 
  Country: None (occurrence: None)
  Receive Date: 20080715
  Receipt Date: 20080715
  Transmission Date: 20090109
  Serious: Yes (Hospitalization)
  Sender: FDA-Public Use
  Company Number: None

PATIENT
  Age: 35 Year
  Sex: Male
  Weight: 72.5755 kg

DRUGS (1)
  1. AMBIEN CR [Suspect]
     Indication: INSOMNIA
     Dosage: 10 MG ONCE/DAY PO
     Route: 048
     Dates: start: 20060301, end: 20060801

REACTIONS (1)
  - SCHIZOPHRENIA, PARANOID TYPE [None]
